FAERS Safety Report 16289547 (Version 1)
Quarter: 2019Q2

REPORT INFORMATION
  Report Type: Spontaneous
  Country: FR (occurrence: FR)
  Receive Date: 20190509
  Receipt Date: 20190509
  Transmission Date: 20190711
  Serious: Yes (Hospitalization)
  Sender: FDA-Public Use
  Company Number: FR-ACCORD-126489

PATIENT
  Age: 59 Year
  Sex: Male
  Weight: 68 kg

DRUGS (3)
  1. INNOHEP [Suspect]
     Active Substance: TINZAPARIN SODIUM
     Indication: THROMBOSIS
     Route: 058
     Dates: start: 20120307, end: 20120316
  2. GEMCITABINE/GEMCITABINE HYDROCHLORIDE [Suspect]
     Active Substance: GEMCITABINE\GEMCITABINE HYDROCHLORIDE
     Indication: LUNG SQUAMOUS CELL CARCINOMA METASTATIC
     Route: 041
     Dates: start: 20120229, end: 20120510
  3. CISPLATIN. [Suspect]
     Active Substance: CISPLATIN
     Indication: LUNG SQUAMOUS CELL CARCINOMA METASTATIC
     Route: 041
     Dates: start: 20120229, end: 20120503

REACTIONS (1)
  - Pancytopenia [Recovered/Resolved]

NARRATIVE: CASE EVENT DATE: 20120312
